FAERS Safety Report 8086582 (Version 6)
Quarter: 2012Q4

REPORT INFORMATION
  Report Type: 
  Country: US (occurrence: US)
  Receive Date: 20110811
  Receipt Date: 20121217
  Transmission Date: 20130627
  Serious: Yes (Hospitalization, Other)
  Sender: FDA-Public Use
  Company Number: US-009507513-1108USA01235

PATIENT

DRUGS (5)
  1. FOSAMAX [Suspect]
     Indication: OSTEOPOROSIS
     Dosage: 70 mg, QW
     Route: 048
     Dates: start: 20050312, end: 2008
  2. ACTONEL [Concomitant]
     Indication: OSTEOPOROSIS
     Dosage: 35 mg, QW
     Route: 048
     Dates: start: 200301, end: 20050312
  3. FOSAMAX [Suspect]
     Indication: OSTEOPOROSIS
     Dosage: 70 mg, QW
     Route: 048
     Dates: start: 20080531, end: 20100420
  4. VICODIN [Suspect]
  5. FOSAMAX [Suspect]
     Indication: OSTEOPENIA
     Dosage: 70 mg, qw
     Route: 048

REACTIONS (23)
  - Femur fracture [Unknown]
  - Breast cancer stage I [Unknown]
  - Basal cell carcinoma [Unknown]
  - Bradycardia [Unknown]
  - Arthropathy [Unknown]
  - Tooth disorder [Unknown]
  - Deep vein thrombosis [Unknown]
  - Thyroid neoplasm [Unknown]
  - Hypertension [Unknown]
  - Coronary artery disease [Unknown]
  - Nephrolithiasis [Unknown]
  - Fibromyalgia [Unknown]
  - Neuroma [Unknown]
  - Uterine disorder [Unknown]
  - Syncope [Unknown]
  - Rheumatoid arthritis [Unknown]
  - Clostridium difficile infection [Unknown]
  - Overdose [Unknown]
  - Migraine [Unknown]
  - Cardiac murmur [Unknown]
  - Haemangioma of liver [Unknown]
  - Concussion [Unknown]
  - Arthritis [Unknown]
